FAERS Safety Report 8419219-8 (Version None)
Quarter: 2012Q2

REPORT INFORMATION
  Report Type: 
  Country: None (occurrence: None)
  Receive Date: 20120530
  Receipt Date: 20120516
  Transmission Date: 20120825
  Serious: Yes (Death, Hospitalization)
  Sender: FDA-Public Use
  Company Number: 2011MA016014

PATIENT
  Age: 25 Year
  Sex: Female

DRUGS (6)
  1. IBUPROFEN [Suspect]
     Indication: NASOPHARYNGITIS
     Dosage: PO
     Route: 048
  2. ACETAMINOPHEN [Suspect]
     Indication: NASOPHARYNGITIS
     Dosage: QD, PO
     Route: 048
  3. ANTIBIOTIC [Concomitant]
  4. FEVERALL [Suspect]
     Indication: NASOPHARYNGITIS
     Dosage: QD, PO
     Route: 048
     Dates: start: 20101201
  5. COUGH MEDICINE (UNSPECIFIED) (INO PREF. NAME) [Suspect]
  6. ACETAMINOPHEN AND CODEINE PHOSPHATE [Concomitant]

REACTIONS (15)
  - OVERDOSE [None]
  - LOWER RESPIRATORY TRACT INFECTION [None]
  - DYSPHAGIA [None]
  - MOUTH CYST [None]
  - BALANCE DISORDER [None]
  - DRUG ADMINISTRATION ERROR [None]
  - APHTHOUS STOMATITIS [None]
  - ABNORMAL BEHAVIOUR [None]
  - GENERAL PHYSICAL HEALTH DETERIORATION [None]
  - DRUG ABUSE [None]
  - ACUTE HEPATIC FAILURE [None]
  - MEMORY IMPAIRMENT [None]
  - HEPATIC NECROSIS [None]
  - HALLUCINATION [None]
  - PHARYNGITIS STREPTOCOCCAL [None]
